FAERS Safety Report 16404673 (Version 1)
Quarter: 2019Q2

REPORT INFORMATION
  Report Type: Spontaneous
  Country: GB (occurrence: GB)
  Receive Date: 20190607
  Receipt Date: 20190607
  Transmission Date: 20190711
  Serious: Yes (Death, Hospitalization)
  Sender: FDA-Public Use
  Company Number: GB-MYLANLABS-07P-167-0376285-00

PATIENT
  Age: 16 Month

DRUGS (1)
  1. IBUPROFEN. [Suspect]
     Active Substance: IBUPROFEN
     Indication: PRODUCT USED FOR UNKNOWN INDICATION
     Dosage: 469 MILLIGRAM/KILOGRAM

REACTIONS (6)
  - Aspiration [Not Recovered/Not Resolved]
  - Sepsis [Fatal]
  - Overdose [Not Recovered/Not Resolved]
  - Apnoea [Not Recovered/Not Resolved]
  - Pneumonitis [Not Recovered/Not Resolved]
  - Seizure [Not Recovered/Not Resolved]
